FAERS Safety Report 9304913 (Version 1)
Quarter: 2013Q2

REPORT INFORMATION
  Report Type: Spontaneous
  Country: AU (occurrence: None)
  Receive Date: 20130520
  Receipt Date: 20130520
  Transmission Date: 20140414
  Serious: Yes (Other)
  Sender: FDA-Public Use
  Company Number: AT-1198181

PATIENT
  Age: 68 Year
  Sex: Female

DRUGS (1)
  1. FLUORESCITE 10 % INJECTION (FLUORESCITE 10%) [Suspect]
     Dosage: 5 ML TOTAL INTRAVENOUS BOLUS)
     Route: 040
     Dates: start: 20130416, end: 20130416

REACTIONS (1)
  - Urticaria [None]
